FAERS Safety Report 8103193-8 (Version None)
Quarter: 2012Q1

REPORT INFORMATION
  Report Type: 
  Country: None (occurrence: None)
  Receive Date: 20120201
  Receipt Date: 20120130
  Transmission Date: 20120608
  Serious: Yes (Other)
  Sender: FDA-Public Use
  Company Number: US-JNJFOC-20111204307

PATIENT
  Sex: Female

DRUGS (5)
  1. WELLBUTRIN XL [Concomitant]
     Indication: DEPRESSION
     Route: 048
  2. AMBIEN [Concomitant]
     Indication: SLEEP DISORDER
     Route: 065
     Dates: start: 20110901
  3. TOPAMAX [Suspect]
     Indication: BINGE EATING
     Route: 048
     Dates: start: 20111019, end: 20111130
  4. DEPAKOTE [Concomitant]
     Indication: DRUG THERAPY
     Route: 048
     Dates: start: 20110101
  5. ABILIFY [Concomitant]
     Indication: DEPRESSION
     Route: 048
     Dates: start: 20111101

REACTIONS (9)
  - CONFUSIONAL STATE [None]
  - DYSGRAPHIA [None]
  - FATIGUE [None]
  - OFF LABEL USE [None]
  - AMNESIA [None]
  - NAUSEA [None]
  - EATING DISORDER [None]
  - MENTAL IMPAIRMENT [None]
  - HALLUCINATION [None]
